FAERS Safety Report 9214648 (Version 1)
Quarter: 2013Q2

REPORT INFORMATION
  Report Type: Spontaneous
  Country: CA (occurrence: CA)
  Receive Date: 20130405
  Receipt Date: 20130405
  Transmission Date: 20140414
  Serious: Yes (Other)
  Sender: FDA-Public Use
  Company Number: CA-ELI_LILLY_AND_COMPANY-CA201303009459

PATIENT
  Age: 47 Year
  Sex: Female

DRUGS (18)
  1. FORTEO [Suspect]
     Indication: OSTEOPOROSIS
     Dosage: 20 UG, QD
     Route: 058
     Dates: start: 20120502
  2. PROGRAF [Concomitant]
  3. LASIX [Concomitant]
  4. VALACICLOVIR [Concomitant]
  5. METHADONE [Concomitant]
  6. NEXIUM [Concomitant]
  7. OXAZEPAM [Concomitant]
  8. PREDNISONE [Concomitant]
  9. MYFORTIC [Concomitant]
  10. PAROXETINE [Concomitant]
  11. MIGRANAL [Concomitant]
  12. DOMPERIDONE [Concomitant]
  13. ADVAIR [Concomitant]
  14. NORTRIPTYLINE [Concomitant]
  15. VORICONAZOLE [Concomitant]
  16. ORACORT [Concomitant]
  17. RATIO-NYSTATIN [Concomitant]
  18. HYDROMORPH [Concomitant]
     Indication: PAIN

REACTIONS (6)
  - Pelvic fracture [Not Recovered/Not Resolved]
  - Sternal fracture [Not Recovered/Not Resolved]
  - Rib fracture [Not Recovered/Not Resolved]
  - Stress fracture [Not Recovered/Not Resolved]
  - Wrist fracture [Not Recovered/Not Resolved]
  - Calcinosis [Not Recovered/Not Resolved]
